FAERS Safety Report 25313410 (Version 1)
Quarter: 2025Q2

REPORT INFORMATION
  Report Type: Spontaneous
  Country: US (occurrence: US)
  Receive Date: 20250514
  Receipt Date: 20250514
  Transmission Date: 20250716
  Serious: No
  Sender: CHATTEM
  Company Number: US-OPELLA-2025OHG014733

PATIENT
  Age: 90 Year
  Sex: Female

DRUGS (1)
  1. ALLEGRA ALLERGY 24 HOUR [Suspect]
     Active Substance: FEXOFENADINE HYDROCHLORIDE
     Indication: Product used for unknown indication
     Dosage: TOOK MORE THAN ONE PILL OF ALLEGRA 24 HRS IN LESS THAN A DAY

REACTIONS (2)
  - Extra dose administered [Unknown]
  - No adverse event [Unknown]
